FAERS Safety Report 13750877 (Version 2)
Quarter: 2017Q3

REPORT INFORMATION
  Report Type: Spontaneous
  Country: US (occurrence: US)
  Receive Date: 20170713
  Receipt Date: 20170713
  Transmission Date: 20171127
  Serious: No
  Sender: FDA-Public Use
  Company Number: US-ASTELLAS-2017US005650

PATIENT
  Age: 71 Year
  Sex: Male

DRUGS (3)
  1. MYRBETRIQ [Suspect]
     Active Substance: MIRABEGRON
     Indication: HYPERTONIC BLADDER
     Route: 065
  2. TESTOSTERONE. [Interacting]
     Active Substance: TESTOSTERONE
     Indication: PRODUCT USED FOR UNKNOWN INDICATION
     Dosage: UNK UNK, EVERY 2 WEEKS
     Route: 030
  3. MYRBETRIQ [Interacting]
     Active Substance: MIRABEGRON
     Indication: HYPERTONIC BLADDER
     Route: 065

REACTIONS (7)
  - Libido decreased [Unknown]
  - Pallor [Unknown]
  - Drug interaction [Unknown]
  - Haemoglobin decreased [Unknown]
  - Anorgasmia [Unknown]
  - Erectile dysfunction [Unknown]
  - Drug ineffective [Unknown]
